FAERS Safety Report 9300261 (Version 1)
Quarter: 2012Q4

REPORT INFORMATION
  Report Type: Spontaneous
  Country: DE (occurrence: None)
  Receive Date: 20121109
  Receipt Date: 20121109
  Transmission Date: 20130627
  Serious: Yes (Life-Threatening, Hospitalization)
  Sender: FDA-Public Use
  Company Number: 2011S1000761

PATIENT
  Age: 80 Year
  Sex: Male
  Weight: 100 kg

DRUGS (2)
  1. CUBICIN (DAPTOMYCIN) [Suspect]
     Indication: INFECTION MRSA
     Route: 042
     Dates: start: 20110504, end: 20110517
  2. SIMVASTATIN (SIMVASTATIN) [Suspect]
     Indication: LIPID METABOLISM DISORDER
     Route: 048
     Dates: start: 20110517

REACTIONS (1)
  - Rhabdomyolysis [None]
